FAERS Safety Report 4644465-9 (Version None)
Quarter: 2005Q2

REPORT INFORMATION
  Report Type: 
  Country: None (occurrence: None)
  Receive Date: 20050331
  Receipt Date: 20050218
  Transmission Date: 20051028
  Serious: No
  Sender: FDA-Public Use
  Company Number: 05P-163-0291268-00

PATIENT
  Age: 62 Year
  Sex: Male
  Weight: 75.2971 kg

DRUGS (7)
  1. HUMIRA [Suspect]
     Indication: RHEUMATOID ARTHRITIS
     Dosage: 40 MG, 1 IN 2 WK, SUBCUTANEOUS
     Route: 058
     Dates: start: 20041201, end: 20050204
  2. CELECOXIB [Concomitant]
  3. ASPIRIN [Concomitant]
  4. VITAMINS [Concomitant]
  5. PREDNISONE [Concomitant]
  6. CALCIUM GLUCONATE [Concomitant]
  7. PANTOPRAZOLE SODIUM [Concomitant]

REACTIONS (1)
  - INFLUENZA [None]
